FAERS Safety Report 13974366 (Version 3)
Quarter: 2018Q2

REPORT INFORMATION
  Report Type: Spontaneous
  Country: US (occurrence: US)
  Receive Date: 20170914
  Receipt Date: 20180625
  Transmission Date: 20180711
  Serious: Yes (Other)
  Sender: FDA-Public Use
  Company Number: US-ASTELLAS-2017US018015

PATIENT
  Sex: Male

DRUGS (1)
  1. XTANDI [Suspect]
     Active Substance: ENZALUTAMIDE
     Indication: PROSTATE CANCER
     Route: 048
     Dates: start: 201511

REACTIONS (5)
  - Atrial fibrillation [Recovering/Resolving]
  - Back pain [Unknown]
  - Malaise [Unknown]
  - Vision blurred [Unknown]
  - Hot flush [Unknown]

NARRATIVE: CASE EVENT DATE: 2018
